FAERS Safety Report 5279971-X (Version None)
Quarter: 2007Q1

REPORT INFORMATION
  Report Type: 
  Country: None (occurrence: None)
  Receive Date: 20070327
  Receipt Date: 20070327
  Transmission Date: 20070707
  Serious: Yes (Hospitalization)
  Sender: FDA-Public Use
  Company Number: None

PATIENT
  Age: 87 Year
  Sex: Male
  Weight: 60.3284 kg

DRUGS (7)
  1. DIGOXIN [Suspect]
     Indication: ATRIAL FIBRILLATION
     Dosage: 0.125 MG DAILY PO
     Route: 048
     Dates: start: 20000501, end: 20070223
  2. ATENOLOL [Concomitant]
  3. FUROSEMIDE [Concomitant]
  4. GLYBURIDE [Concomitant]
  5. ISOSORBIDE [Concomitant]
  6. MONONITRATE [Concomitant]
  7. WARFARIN SODIUM [Concomitant]

REACTIONS (4)
  - DEHYDRATION [None]
  - DRUG TOXICITY [None]
  - ORAL INTAKE REDUCED [None]
  - RENAL FAILURE ACUTE [None]
